FAERS Safety Report 5130700-X (Version None)
Quarter: 2006Q4

REPORT INFORMATION
  Report Type: 
  Country: None (occurrence: None)
  Receive Date: 20061019
  Receipt Date: 20061006
  Transmission Date: 20070319
  Serious: Yes (Hospitalization)
  Sender: FDA-Public Use
  Company Number: JP-JNJFOC-20060900308

PATIENT
  Sex: Female
  Weight: 43 kg

DRUGS (25)
  1. REMICADE [Suspect]
     Route: 042
  2. REMICADE [Suspect]
     Route: 042
  3. REMICADE [Suspect]
     Route: 042
  4. REMICADE [Suspect]
     Route: 042
  5. REMICADE [Suspect]
     Route: 042
  6. REMICADE [Suspect]
     Route: 042
  7. REMICADE [Suspect]
     Route: 042
  8. REMICADE [Suspect]
     Route: 042
  9. REMICADE [Suspect]
     Indication: RHEUMATOID ARTHRITIS
     Route: 042
  10. RHEUMATREX [Suspect]
     Route: 048
  11. RHEUMATREX [Suspect]
     Route: 048
  12. RHEUMATREX [Suspect]
     Route: 048
  13. RHEUMATREX [Suspect]
     Indication: RHEUMATOID ARTHRITIS
     Route: 048
  14. ALESION [Concomitant]
     Indication: PROPHYLAXIS
     Route: 048
  15. NEOMALLERMIN-TR [Concomitant]
     Indication: PROPHYLAXIS
     Route: 048
  16. PREDNISOLONE [Concomitant]
     Indication: RHEUMATOID ARTHRITIS
     Route: 048
  17. AZULFIDINE EN-TABS [Concomitant]
     Indication: RHEUMATOID ARTHRITIS
     Route: 048
  18. LOXONIN [Concomitant]
     Indication: RHEUMATOID ARTHRITIS
     Route: 048
  19. FOLIAMIN [Concomitant]
     Indication: PROPHYLAXIS
     Route: 048
  20. MUCOSTA [Concomitant]
     Route: 048
  21. MUCOSTA [Concomitant]
     Indication: PROPHYLAXIS
     Route: 048
  22. SELBEX [Concomitant]
     Route: 048
  23. ALFASULY [Concomitant]
     Indication: OSTEOPOROSIS PROPHYLAXIS
     Dosage: DOSE 1 RG, 1RG
     Route: 048
  24. ADRENAL HORMONE PREPARATION [Concomitant]
     Indication: RHEUMATOID ARTHRITIS
  25. AMLODIN [Concomitant]
     Indication: HYPERTENSION
     Route: 048

REACTIONS (3)
  - INFUSION RELATED REACTION [None]
  - LUPUS-LIKE SYNDROME [None]
  - SENSORY DISTURBANCE [None]
